FAERS Safety Report 14394119 (Version 1)
Quarter: 2018Q1

REPORT INFORMATION
  Report Type: Spontaneous
  Country: US (occurrence: US)
  Receive Date: 20180116
  Receipt Date: 20180116
  Transmission Date: 20180509
  Serious: Yes (Other)
  Sender: FDA-Public Use
  Company Number: US-REGENERON PHARMACEUTICALS, INC.-2017-15293

PATIENT

DRUGS (3)
  1. EYLEA [Suspect]
     Active Substance: AFLIBERCEPT
     Indication: DIABETIC RETINAL OEDEMA
     Dosage: 2 MG, Q12WEEKS
     Route: 031
     Dates: start: 20151124, end: 20170426
  2. EYLEA [Suspect]
     Active Substance: AFLIBERCEPT
     Dosage: 2 MG, Q12WEEKS
     Route: 031
     Dates: start: 20170201, end: 20170201
  3. EYLEA [Suspect]
     Active Substance: AFLIBERCEPT
     Dosage: 2 MG, Q12WEEKS
     Route: 031
     Dates: start: 20170426, end: 20170426

REACTIONS (4)
  - Eye inflammation [Recovered/Resolved]
  - Eye inflammation [Recovered/Resolved]
  - Non-infectious endophthalmitis [Recovered/Resolved]
  - Eye oedema [Unknown]

NARRATIVE: CASE EVENT DATE: 20170201
